FAERS Safety Report 21826563 (Version 4)
Quarter: 2023Q1

REPORT INFORMATION
  Report Type: Spontaneous
  Country: US (occurrence: US)
  Receive Date: 20230106
  Receipt Date: 20230315
  Transmission Date: 20230418
  Serious: Yes (Death, Hospitalization, Other)
  Sender: FDA-Public Use
  Company Number: US-002147023-NVSC2023US002224

PATIENT
  Age: 67 Year
  Sex: Female

DRUGS (6)
  1. KYMRIAH [Suspect]
     Active Substance: TISAGENLECLEUCEL
     Indication: Diffuse large B-cell lymphoma
     Dosage: 3.6E8 CAR-POSITIVE VIABLE T PASS-CELLS, ONCE/SINGLE
     Route: 042
     Dates: start: 20220926, end: 20220926
  2. DOXORUBICIN [Suspect]
     Active Substance: DOXORUBICIN
     Indication: Product used for unknown indication
     Dosage: UNK
     Route: 065
  3. PREDNISONE [Suspect]
     Active Substance: PREDNISONE
     Indication: Product used for unknown indication
     Dosage: UNK
     Route: 065
  4. ANAKINRA [Concomitant]
     Active Substance: ANAKINRA
     Indication: Product used for unknown indication
     Dosage: 100 MG, QD (FOR 11 DAYS) (BEGINNING DAY +2 FROM THE INFUSION OF KYMRIAH)
     Route: 065
  5. CYCLOPHOSPHAMIDE [Concomitant]
     Active Substance: CYCLOPHOSPHAMIDE
     Indication: Product used for unknown indication
     Dosage: UNK
     Route: 065
  6. FIDAXOMICIN [Concomitant]
     Active Substance: FIDAXOMICIN
     Indication: Product used for unknown indication
     Dosage: UNK
     Route: 065

REACTIONS (30)
  - Failure to thrive [Fatal]
  - Diffuse large B-cell lymphoma [Fatal]
  - Malignant neoplasm progression [Fatal]
  - Chronic kidney disease [Fatal]
  - Metastases to bone [Fatal]
  - Muscular weakness [Unknown]
  - Fall [Unknown]
  - Head injury [Unknown]
  - Cachexia [Unknown]
  - Lung opacity [Not Recovered/Not Resolved]
  - Pain [Not Recovered/Not Resolved]
  - Immune effector cell-associated neurotoxicity syndrome [Unknown]
  - Pyrexia [Unknown]
  - Delirium [Unknown]
  - Encephalopathy [Unknown]
  - Fatigue [Unknown]
  - Malaise [Unknown]
  - Asthenia [Unknown]
  - Cerebrovascular accident [Not Recovered/Not Resolved]
  - Facial paralysis [Unknown]
  - Enterococcal infection [Unknown]
  - Neuropathy peripheral [Unknown]
  - Pneumonia [Unknown]
  - Pulmonary oedema [Unknown]
  - Respirovirus test positive [Unknown]
  - Dysphagia [Unknown]
  - Limb discomfort [Unknown]
  - Confusional state [Unknown]
  - Dysarthria [Unknown]
  - Dyskinesia [Unknown]

NARRATIVE: CASE EVENT DATE: 20221019
